FAERS Safety Report 8051649-9 (Version None)
Quarter: 2012Q1

REPORT INFORMATION
  Report Type: 
  Country: None (occurrence: None)
  Receive Date: 20120118
  Receipt Date: 20120112
  Transmission Date: 20120608
  Serious: No
  Sender: FDA-Public Use
  Company Number: US-BIOGENIDEC-2011BI035189

PATIENT
  Sex: Female

DRUGS (3)
  1. TYSABRI [Suspect]
     Indication: MULTIPLE SCLEROSIS
     Route: 042
  2. AVONEX [Concomitant]
     Indication: MULTIPLE SCLEROSIS
     Route: 030
     Dates: start: 20110715
  3. TYSABRI [Suspect]
     Route: 042
     Dates: start: 20110816, end: 20110816

REACTIONS (4)
  - ANXIETY [None]
  - RASH PRURITIC [None]
  - ALOPECIA [None]
  - MOBILITY DECREASED [None]
